FAERS Safety Report 9680911 (Version 2)
Quarter: 2013Q4

REPORT INFORMATION
  Report Type: Spontaneous
  Country: BR (occurrence: BR)
  Receive Date: 20131111
  Receipt Date: 20131204
  Transmission Date: 20140711
  Serious: Yes (Other)
  Sender: FDA-Public Use
  Company Number: BR-PFIZER INC-2013312717

PATIENT
  Age: 74 Year
  Sex: Male

DRUGS (1)
  1. XALATAN [Suspect]
     Dosage: UNK
     Dates: start: 201308

REACTIONS (8)
  - Neoplasm malignant [Unknown]
  - Prostatic specific antigen increased [Unknown]
  - Headache [Recovered/Resolved]
  - Eye pain [Recovered/Resolved]
  - Lacrimation increased [Recovered/Resolved]
  - Hypermetropia [Unknown]
  - Therapeutic response unexpected [Unknown]
  - Intraocular pressure increased [Recovered/Resolved]
